FAERS Safety Report 7512021-0 (Version None)
Quarter: 2011Q2

REPORT INFORMATION
  Report Type: 
  Country: None (occurrence: None)
  Receive Date: 20110531
  Receipt Date: 20110517
  Transmission Date: 20111010
  Serious: Yes (Other)
  Sender: FDA-Public Use
  Company Number: PHHY2011FR38606

PATIENT
  Sex: Female
  Weight: 69 kg

DRUGS (4)
  1. EXFORGE [Suspect]
     Indication: HYPERTENSION
     Dosage: 160 MG VALS AND 10 MG AMLO  (IN THE MORNING)
     Route: 048
     Dates: start: 20110315, end: 20110425
  2. RANITIDINE HCL [Concomitant]
     Dosage: 1 DF, ORAL TABLET ONCE PER DAY
     Route: 048
  3. TRAMADOL HCL [Concomitant]
     Indication: PAIN
     Dosage: ONCE IF PAIN
  4. PREVISCAN [Concomitant]
     Dosage: 3 TO 4 TABLETS DAILY
     Route: 048

REACTIONS (8)
  - EYE DISORDER [None]
  - EYE SWELLING [None]
  - ERYTHEMA [None]
  - HEADACHE [None]
  - EYE DISCHARGE [None]
  - NASAL DISCOMFORT [None]
  - EYELID PAIN [None]
  - OEDEMA MOUTH [None]
